FAERS Safety Report 5483561-3 (Version None)
Quarter: 2007Q4

REPORT INFORMATION
  Report Type: 
  Country: None (occurrence: None)
  Receive Date: 20071010
  Receipt Date: 20071010
  Transmission Date: 20080405
  Serious: Yes (Hospitalization)
  Sender: FDA-Public Use
  Company Number: None

PATIENT
  Age: 42 Year
  Sex: Female
  Weight: 67.586 kg

DRUGS (2)
  1. AVELOX [Suspect]
     Indication: BRONCHITIS
     Dates: start: 20070927, end: 20070928
  2. AVELOX [Suspect]
     Indication: SINUSITIS
     Dates: start: 20070927, end: 20070928

REACTIONS (7)
  - ADVERSE DRUG REACTION [None]
  - ANXIETY [None]
  - DIZZINESS [None]
  - HYPOAESTHESIA [None]
  - HYPOAESTHESIA FACIAL [None]
  - PALPITATIONS [None]
  - PARAESTHESIA [None]
